FAERS Safety Report 8008503-8 (Version None)
Quarter: 2011Q4

REPORT INFORMATION
  Report Type: 
  Country: None (occurrence: None)
  Receive Date: 20111227
  Receipt Date: 20111214
  Transmission Date: 20120403
  Serious: Yes (Hospitalization, Other)
  Sender: FDA-Public Use
  Company Number: BR-ROCHE-1022137

PATIENT
  Sex: Female

DRUGS (3)
  1. XOLAIR [Suspect]
     Indication: ASTHMA
     Dates: start: 20110201
  2. BUDESONIDE [Suspect]
     Indication: ASTHMA
     Dates: start: 20110201
  3. SINGULAIR [Concomitant]
     Indication: PRODUCT USED FOR UNKNOWN INDICATION

REACTIONS (8)
  - TOOTHACHE [None]
  - PAIN IN EXTREMITY [None]
  - PNEUMONIA [None]
  - MIGRAINE [None]
  - RESPIRATORY TRACT INFECTION [None]
  - HEADACHE [None]
  - ASTHMA [None]
  - SINUSITIS [None]
